FAERS Safety Report 8208042-5 (Version None)
Quarter: 2012Q1

REPORT INFORMATION
  Report Type: 
  Country: None (occurrence: None)
  Receive Date: 20120314
  Receipt Date: 20120306
  Transmission Date: 20120608
  Serious: Yes (Hospitalization)
  Sender: FDA-Public Use
  Company Number: FR-ABBOTT-12P-056-0895982-00

PATIENT
  Sex: Female
  Weight: 75 kg

DRUGS (1)
  1. HUMIRA [Suspect]
     Indication: ANKYLOSING SPONDYLITIS
     Route: 058
     Dates: start: 20101201

REACTIONS (6)
  - OLIGOMENORRHOEA [None]
  - MENSTRUATION DELAYED [None]
  - ALANINE AMINOTRANSFERASE INCREASED [None]
  - TRANSAMINASES INCREASED [None]
  - DYSMENORRHOEA [None]
  - ALOPECIA AREATA [None]
